FAERS Safety Report 9791144 (Version 2)
Quarter: 2014Q2

REPORT INFORMATION
  Report Type: Report from Study
  Country: NL (occurrence: NL)
  Receive Date: 20131231
  Receipt Date: 20140613
  Transmission Date: 20141212
  Serious: Yes (Hospitalization)
  Sender: FDA-Public Use
  Company Number: NL-ABBVIE-13P-114-1183922-00

PATIENT
  Age: 51 Year
  Sex: Female
  Weight: 108 kg

DRUGS (5)
  1. LUCRIN [Suspect]
     Indication: LEIOMYOMA
     Route: 058
     Dates: start: 20130129, end: 201303
  2. LUCRIN [Suspect]
     Indication: LEIOMYOMA
     Route: 058
     Dates: start: 20130404, end: 201403
  3. ATACAND PLUS [Concomitant]
     Indication: BLOOD PRESSURE
     Route: 048
  4. METFORMIN [Concomitant]
     Indication: PRODUCT USED FOR UNKNOWN INDICATION
     Route: 048
  5. EZETROL [Concomitant]
     Indication: BLOOD CHOLESTEROL

REACTIONS (3)
  - Foot fracture [Recovered/Resolved]
  - Drug ineffective [Not Recovered/Not Resolved]
  - Fall [Unknown]
